FAERS Safety Report 9424644 (Version 1)
Quarter: 2013Q3

REPORT INFORMATION
  Report Type: Spontaneous
  Country: US (occurrence: None)
  Receive Date: 20130726
  Receipt Date: 20130726
  Transmission Date: 20140515
  Serious: Yes (Hospitalization)
  Sender: FDA-Public Use
  Company Number: None

PATIENT
  Age: 67 Year
  Sex: Male
  Weight: 72.5 kg

DRUGS (1)
  1. PRIALT [Suspect]
     Indication: BACK PAIN
     Route: 038
     Dates: start: 20120101, end: 20130714

REACTIONS (13)
  - Confusional state [None]
  - Somnolence [None]
  - Somnolence [None]
  - Hallucination, visual [None]
  - Post procedural complication [None]
  - Inappropriate schedule of drug administration [None]
  - Delirium [None]
  - Suicidal ideation [None]
  - Dysgeusia [None]
  - Dysgeusia [None]
  - Nausea [None]
  - Hypophagia [None]
  - Therapy change [None]
